FAERS Safety Report 4311675-X (Version None)
Quarter: 2004Q1

REPORT INFORMATION
  Report Type: 
  Country: None (occurrence: None)
  Receive Date: 20040303
  Receipt Date: 20040303
  Transmission Date: 20041129
  Serious: Yes (Hospitalization)
  Sender: FDA-Public Use
  Company Number: None

PATIENT
  Age: 60 Year
  Sex: Female

DRUGS (2)
  1. METFORMIN [Suspect]
     Indication: DIABETES MELLITUS
     Dosage: 500 MG BID ORAL
     Route: 048
  2. GLIPIZIDE [Suspect]
     Dosage: 10 MG BID ORAL
     Route: 048

REACTIONS (4)
  - CHEST PAIN [None]
  - HEADACHE [None]
  - HYPOGLYCAEMIA [None]
  - MEDICATION ERROR [None]
